FAERS Safety Report 5029738-2 (Version None)
Quarter: 2006Q2

REPORT INFORMATION
  Report Type: 
  Country: None (occurrence: None)
  Receive Date: 20060620
  Receipt Date: 20060515
  Transmission Date: 20061013
  Serious: Yes (Life-Threatening, Hospitalization)
  Sender: FDA-Public Use
  Company Number: 2006AP02270

PATIENT
  Age: 27650 Day
  Sex: Male
  Weight: 57 kg

DRUGS (10)
  1. IRESSA [Suspect]
     Indication: LUNG ADENOCARCINOMA
     Route: 048
     Dates: start: 20060509, end: 20060516
  2. MAXIPIME [Suspect]
     Route: 041
     Dates: start: 20060512, end: 20060515
  3. OMEPRAL [Concomitant]
     Indication: GASTRIC ULCER
     Route: 048
     Dates: start: 20060411
  4. ROCALTROL [Concomitant]
     Route: 048
     Dates: start: 20060414
  5. OPALMON [Concomitant]
     Indication: BENIGN PROSTATIC HYPERPLASIA
     Route: 048
  6. CERNILTON [Concomitant]
     Indication: BENIGN PROSTATIC HYPERPLASIA
     Route: 048
  7. FLIVAS [Concomitant]
     Indication: BENIGN PROSTATIC HYPERPLASIA
     Route: 048
  8. AMOBAN [Concomitant]
     Indication: INSOMNIA
     Route: 048
  9. PREDNISOLONE [Concomitant]
     Route: 048
  10. RADIOTHERAPY [Concomitant]
     Dosage: 2.5 GY DAILY TO WHOLE BRAIN
     Dates: start: 20060412, end: 20060502

REACTIONS (9)
  - ABNORMAL BEHAVIOUR [None]
  - APLASTIC ANAEMIA [None]
  - ASTHENIA [None]
  - BONE MARROW FAILURE [None]
  - DIARRHOEA [None]
  - DIZZINESS [None]
  - PANCYTOPENIA [None]
  - PYREXIA [None]
  - SPEECH DISORDER [None]
